FAERS Safety Report 11678266 (Version 3)
Quarter: 2015Q4

REPORT INFORMATION
  Report Type: Report from Study
  Country: AR (occurrence: AR)
  Receive Date: 20151028
  Receipt Date: 20151211
  Transmission Date: 20160304
  Serious: Yes (Other)
  Sender: FDA-Public Use
  Company Number: PHHY2015AR138193

PATIENT
  Sex: Female

DRUGS (2)
  1. ONBREZ BREEZHALER [Suspect]
     Active Substance: INDACATEROL
     Indication: ASTHMA
     Dosage: 150 UG, QD
     Route: 065
  2. ONBREZ BREEZHALER [Suspect]
     Active Substance: INDACATEROL
     Indication: RESPIRATORY DISORDER
     Dosage: ONE IN THE MORNING AND ONE IN THE AFTERNOON
     Route: 065

REACTIONS (7)
  - Dyspnoea [Recovering/Resolving]
  - Fatigue [Recovering/Resolving]
  - Therapeutic response decreased [Unknown]
  - Asthmatic crisis [Recovering/Resolving]
  - Malaise [Recovering/Resolving]
  - Off label use [Unknown]
  - Asthma [Recovering/Resolving]
